FAERS Safety Report 11223572 (Version 1)
Quarter: 2015Q2

REPORT INFORMATION
  Report Type: Spontaneous
  Country: ES (occurrence: ES)
  Receive Date: 20150629
  Receipt Date: 20150629
  Transmission Date: 20150821
  Serious: Yes (Hospitalization)
  Sender: FDA-Public Use
  Company Number: ES-ROCHE-1598206

PATIENT
  Age: 79 Year
  Sex: Male
  Weight: 59 kg

DRUGS (7)
  1. XELODA [Suspect]
     Active Substance: CAPECITABINE
     Indication: RECTAL CANCER
     Route: 048
     Dates: start: 20140519, end: 20140613
  2. DEXAMETASONA [Concomitant]
     Active Substance: DEXAMETHASONE
     Route: 042
     Dates: start: 20140519, end: 20140519
  3. INNOHEP [Concomitant]
     Active Substance: TINZAPARIN SODIUM
     Indication: ATRIAL FIBRILLATION
     Dosage: 10000  UI
     Route: 058
     Dates: start: 20140519
  4. FORTECORTIN [Concomitant]
     Active Substance: DEXAMETHASONE
     Route: 048
     Dates: start: 20140520
  5. OXALIPLATINO [Suspect]
     Active Substance: OXALIPLATIN
     Indication: RECTAL CANCER
     Dosage: 210 MG IN 2 HOURS
     Route: 042
     Dates: start: 20140519, end: 20140519
  6. AVASTIN [Suspect]
     Active Substance: BEVACIZUMAB
     Indication: RECTAL CANCER
     Dosage: 25 MG/ML, 440 MG IN 90 MIN
     Route: 042
     Dates: start: 20140519, end: 20140519
  7. KYTRIL [Concomitant]
     Active Substance: GRANISETRON HYDROCHLORIDE
     Dosage: 1 VIAL,INDICATION - CA RECTO
     Route: 042
     Dates: start: 20140519, end: 20140519

REACTIONS (3)
  - Mucosal inflammation [Recovered/Resolved]
  - Hepatitis acute [Recovered/Resolved]
  - Intestinal obstruction [Recovered/Resolved]

NARRATIVE: CASE EVENT DATE: 20140613
